FAERS Safety Report 6580864-6 (Version None)
Quarter: 2010Q1

REPORT INFORMATION
  Report Type: 
  Country: None (occurrence: None)
  Receive Date: 20100203
  Receipt Date: 20100119
  Transmission Date: 20100710
  Serious: Yes (Other)
  Sender: FDA-Public Use
  Company Number: 2009S1004747

PATIENT
  Age: 72 Year
  Sex: Female

DRUGS (8)
  1. PHOSPHOSODA FLAVOR NOT SPECIFIED [Suspect]
     Indication: COLONOSCOPY
     Dosage: 90 ML;TOTAL;PO
     Route: 048
     Dates: start: 20051220, end: 20051220
  2. DAYPRO [Concomitant]
  3. DETROL [Concomitant]
  4. ZANTAC [Concomitant]
  5. FOSAMAX [Concomitant]
  6. NIACIN [Concomitant]
  7. FOLIC ACID [Concomitant]
  8. VITAMIN C [Concomitant]

REACTIONS (3)
  - NEPHROCALCINOSIS [None]
  - RENAL DISORDER [None]
  - RENAL FAILURE [None]
